FAERS Safety Report 5900732-X (Version None)
Quarter: 2008Q3

REPORT INFORMATION
  Report Type: 
  Country: None (occurrence: None)
  Receive Date: 20080928
  Receipt Date: 20080916
  Transmission Date: 20090109
  Serious: Yes (Other)
  Sender: FDA-Public Use
  Company Number: US-BAYER-US-2006-038192

PATIENT
  Age: 37 Year
  Sex: Male

DRUGS (19)
  1. MAGNEVIST [Suspect]
     Indication: ANGIOGRAM
     Dosage: UNIT DOSE: 40 ML
     Route: 042
     Dates: start: 20051014, end: 20051014
  2. MAGNEVIST [Suspect]
     Dosage: UNIT DOSE: 60 ML
     Route: 042
     Dates: start: 20070118, end: 20070118
  3. MAGNEVIST [Suspect]
     Dates: start: 20040610, end: 20040610
  4. OMNISCAN [Suspect]
     Indication: ANGIOGRAM
     Dates: start: 20050811, end: 20050811
  5. OMNISCAN [Suspect]
     Dates: start: 20060710, end: 20060710
  6. OMNISCAN [Suspect]
     Dates: start: 20050805, end: 20050805
  7. OMNISCAN [Suspect]
     Dates: start: 20050815, end: 20050815
  8. OMNISCAN [Suspect]
     Dates: start: 20070122, end: 20070122
  9. OMNISCAN [Suspect]
     Dates: start: 20060228, end: 20060228
  10. ULTRAVIST 370 [Concomitant]
     Dates: start: 20050921, end: 20050921
  11. ULTRAVIST 300 [Concomitant]
     Indication: ANGIOGRAM
     Route: 042
     Dates: start: 20051012, end: 20051012
  12. CYCLOSPORINE [Concomitant]
  13. BUSULFEX [Concomitant]
     Indication: MULTIPLE MYELOMA
     Dates: start: 20050715
  14. EPOETIN NOS [Concomitant]
  15. TRIAMCINOLONE DIACETATE [Concomitant]
  16. CALCIUM ACETATE [Concomitant]
  17. SEVELAMER [Concomitant]
  18. ACYCLOVIR [Concomitant]
  19. PANTOPRAZOLE SODIUM [Concomitant]

REACTIONS (20)
  - ABDOMINAL PAIN UPPER [None]
  - ANHEDONIA [None]
  - ANXIETY [None]
  - ARTHRALGIA [None]
  - DRY SKIN [None]
  - DYSSTASIA [None]
  - INJURY [None]
  - INSOMNIA [None]
  - MOBILITY DECREASED [None]
  - MUSCULOSKELETAL PAIN [None]
  - NEPHROGENIC SYSTEMIC FIBROSIS [None]
  - PAIN [None]
  - PAIN IN EXTREMITY [None]
  - PRURITUS [None]
  - SCAR [None]
  - SKIN DISORDER [None]
  - SKIN EXFOLIATION [None]
  - SKIN HYPERTROPHY [None]
  - SKIN OEDEMA [None]
  - SWELLING [None]
